FAERS Safety Report 4731514-2 (Version None)
Quarter: 2005Q3

REPORT INFORMATION
  Report Type: 
  Country: None (occurrence: None)
  Receive Date: 20050802
  Receipt Date: 20050722
  Transmission Date: 20060218
  Serious: Yes (Death)
  Sender: FDA-Public Use
  Company Number: CN-MERCK-0507CHN00020

PATIENT
  Age: 70 Year
  Sex: Male

DRUGS (8)
  1. PRIMAXIN [Suspect]
     Indication: INFECTION
     Route: 042
     Dates: start: 20050628, end: 20050628
  2. PRIMAXIN [Suspect]
     Route: 042
     Dates: start: 20050630, end: 20050630
  3. CEFOPERAZONE SODIUM AND SULBACTAM SODIUM [Concomitant]
     Indication: INFECTION
     Route: 051
     Dates: start: 20050601, end: 20050627
  4. LEVOFLOXACIN [Suspect]
     Indication: INFECTION
     Route: 051
     Dates: start: 20050628, end: 20050628
  5. [THERAPY UNSPECIFIED] [Suspect]
     Indication: INFECTION
     Route: 051
     Dates: start: 20050630, end: 20050630
  6. CORTICOSTEROIDS (UNSPECIFIED) [Concomitant]
     Route: 051
  7. CEFTRIAXONE SODIUM [Concomitant]
     Route: 065
  8. [THERAPY UNSPECIFIED] [Concomitant]
     Route: 065

REACTIONS (3)
  - DEATH [None]
  - FEELING COLD [None]
  - PYREXIA [None]
